FAERS Safety Report 15244672 (Version 1)
Quarter: 2018Q3

REPORT INFORMATION
  Report Type: Report from Study
  Country: IL (occurrence: NP)
  Receive Date: 20180806
  Receipt Date: 20180806
  Transmission Date: 20181010
  Serious: Yes (Other)
  Sender: FDA-Public Use
  Company Number: IL-MYLANLABS-2018M1058384

PATIENT
  Age: 11 Year
  Sex: Male

DRUGS (4)
  1. PROPOFOL. [Suspect]
     Active Substance: PROPOFOL
     Indication: SEDATIVE THERAPY
     Dosage: 2.5MG/KG
     Route: 065
  2. KETAMINE [Suspect]
     Active Substance: KETAMINE
     Indication: ANALGESIC THERAPY
  3. PROPOFOL. [Suspect]
     Active Substance: PROPOFOL
     Indication: ANALGESIC THERAPY
  4. KETAMINE [Suspect]
     Active Substance: KETAMINE
     Indication: SEDATIVE THERAPY
     Dosage: 2 MG/KG
     Route: 065

REACTIONS (2)
  - Oxygen saturation decreased [Recovered/Resolved]
  - Apnoea [Recovered/Resolved]
